FAERS Safety Report 16428088 (Version 1)
Quarter: 2019Q2

REPORT INFORMATION
  Report Type: Spontaneous
  Country: GB (occurrence: GB)
  Receive Date: 20190613
  Receipt Date: 20190613
  Transmission Date: 20190711
  Serious: Yes (Other)
  Sender: FDA-Public Use
  Company Number: GB-ELI_LILLY_AND_COMPANY-GB201906001218

PATIENT
  Age: 66 Year
  Sex: Female
  Weight: 140.2 kg

DRUGS (14)
  1. HYDROXOCOBALAMIN [Concomitant]
     Active Substance: HYDROXOCOBALAMIN
     Dosage: ONE INJECTION TWICE WEEKLY FOR THREE WEEKS THEN ONE INJECTION EVERY 4 MONTHS?1MG/ML
     Dates: start: 20151023
  2. SERETIDE [Concomitant]
     Active Substance: FLUTICASONE PROPIONATE\SALMETEROL XINAFOATE
     Route: 055
     Dates: start: 20161219
  3. METFORMIN [Concomitant]
     Active Substance: METFORMIN HYDROCHLORIDE
     Dosage: MORNING AND ONE WITH EVENING MEAL
     Dates: start: 20170214
  4. GLIMEPIRIDE. [Concomitant]
     Active Substance: GLIMEPIRIDE
     Dates: start: 20170214, end: 20170322
  5. DAPAGLIFLOZIN. [Concomitant]
     Active Substance: DAPAGLIFLOZIN
     Dosage: (AT BREAKFAST)
     Dates: start: 20170214, end: 20170410
  6. AMITRIPTYLINE [Concomitant]
     Active Substance: AMITRIPTYLINE
     Dosage: NIGHT
     Dates: start: 20170214
  7. ATORVASTATIN [Concomitant]
     Active Substance: ATORVASTATIN
     Dates: start: 20170214
  8. CETIRIZINE [Concomitant]
     Active Substance: CETIRIZINE HYDROCHLORIDE
     Dates: start: 20170214
  9. VENTOLINE [SALBUTAMOL SULFATE] [Concomitant]
     Active Substance: ALBUTEROL SULFATE
     Dosage: 100MICROGRAMS/DOSE
     Route: 055
     Dates: start: 20170214
  10. OMEPRAZOLE. [Concomitant]
     Active Substance: OMEPRAZOLE
     Indication: HYPERCHLORHYDRIA
     Dates: start: 20170214
  11. PARACETAMOL [Concomitant]
     Active Substance: ACETAMINOPHEN
     Dosage: 2 FOUR TIMES A DAY WHEN REQUIRED
     Dates: start: 20170214
  12. CANDESARTAN. [Concomitant]
     Active Substance: CANDESARTAN
     Dates: start: 20161220
  13. DULAGLUTIDE. [Suspect]
     Active Substance: DULAGLUTIDE
     Indication: PRODUCT USED FOR UNKNOWN INDICATION
     Dosage: 0.75MG/0.5ML
     Route: 065
  14. DOXYCYCLINE. [Concomitant]
     Active Substance: DOXYCYCLINE
     Dosage: 2 TODAY AND FOLLOW WITH ONE EVERY DAY
     Dates: start: 20170221

REACTIONS (2)
  - Nausea [Unknown]
  - Dizziness [Recovered/Resolved]

NARRATIVE: CASE EVENT DATE: 20170221
